FAERS Safety Report 14293620 (Version 1)
Quarter: 2017Q4

REPORT INFORMATION
  Report Type: Spontaneous
  Country: PE (occurrence: PE)
  Receive Date: 20171216
  Receipt Date: 20171216
  Transmission Date: 20180321
  Serious: Yes (Other)
  Sender: FDA-Public Use
  Company Number: PE-009507513-1712FRA006597

PATIENT
  Age: 25 Year
  Sex: Male

DRUGS (2)
  1. TEMOZOLOMIDE. [Suspect]
     Active Substance: TEMOZOLOMIDE
     Indication: GLIOBLASTOMA
     Dosage: 100 MG/DAY
     Route: 048
  2. PHENYTOIN. [Concomitant]
     Active Substance: PHENYTOIN

REACTIONS (3)
  - Herpes oesophagitis [Recovering/Resolving]
  - Oesophageal candidiasis [Recovering/Resolving]
  - Pneumonia [Recovering/Resolving]
